FAERS Safety Report 16787947 (Version 8)
Quarter: 2020Q1

REPORT INFORMATION
  Report Type: Spontaneous
  Country: US (occurrence: US)
  Receive Date: 20190909
  Receipt Date: 20200212
  Transmission Date: 20200409
  Serious: Yes (Hospitalization)
  Sender: FDA-Public Use
  Company Number: US-ACTELION-A-US2019-195032

PATIENT
  Sex: Female
  Weight: 151.02 kg

DRUGS (4)
  1. REMODULIN [Suspect]
     Active Substance: TREPROSTINIL
     Indication: PRODUCT USED FOR UNKNOWN INDICATION
     Route: 065
  2. TREPROSTINIL. [Concomitant]
     Active Substance: TREPROSTINIL
  3. SILDENAFIL CITRATE. [Concomitant]
     Active Substance: SILDENAFIL CITRATE
  4. OPSUMIT [Suspect]
     Active Substance: MACITENTAN
     Indication: PULMONARY ARTERIAL HYPERTENSION
     Dosage: 10 MG, QD
     Route: 048

REACTIONS (14)
  - Heart rate increased [Unknown]
  - Joint swelling [Unknown]
  - Headache [Unknown]
  - Arthralgia [Unknown]
  - Adverse reaction [Unknown]
  - Vomiting [Unknown]
  - Dyspepsia [Unknown]
  - Fatigue [Unknown]
  - Malaise [Unknown]
  - Catheter site pruritus [Unknown]
  - Diarrhoea [Unknown]
  - Hospitalisation [Unknown]
  - Pain in jaw [Unknown]
  - Nasopharyngitis [Unknown]
